FAERS Safety Report 19646064 (Version 1)
Quarter: 2021Q3

REPORT INFORMATION
  Report Type: Spontaneous
  Country: US (occurrence: US)
  Receive Date: 20210728
  Receipt Date: 20210728
  Transmission Date: 20211014
  Serious: No
  Sender: FDA-Public Use
  Company Number: None

PATIENT
  Age: 67 Year
  Sex: Male
  Weight: 100.7 kg

DRUGS (1)
  1. CASIRIVIMAB AND LMDEVIMAB [Suspect]
     Active Substance: CASIRIVIMAB\IMDEVIMAB
     Dates: start: 20210726, end: 20210727

REACTIONS (2)
  - Product preparation error [None]
  - Product packaging confusion [None]

NARRATIVE: CASE EVENT DATE: 20210726
